FAERS Safety Report 18382403 (Version 3)
Quarter: 2021Q2

REPORT INFORMATION
  Report Type: Report from Study
  Country: US (occurrence: US)
  Receive Date: 20201014
  Receipt Date: 20210420
  Transmission Date: 20210717
  Serious: Yes (Hospitalization, Other)
  Sender: FDA-Public Use
  Company Number: US-SHIRE-US202032915

PATIENT
  Sex: Female
  Weight: 91 kg

DRUGS (27)
  1. HUMAN NORMAL IMMUNOGLOBULIN; LIQUID [Suspect]
     Active Substance: HUMAN IMMUNOGLOBULIN G
     Dosage: 1 GRAM, 1/WEEK
     Route: 058
     Dates: start: 20130618
  2. DIPHENHYDRAMINE. [Concomitant]
     Active Substance: DIPHENHYDRAMINE
     Route: 065
  3. DICLOFENAC SODIUM. [Concomitant]
     Active Substance: DICLOFENAC SODIUM
     Route: 065
  4. PERFOROMIST [Concomitant]
     Active Substance: FORMOTEROL FUMARATE DIHYDRATE
     Route: 065
  5. ALBUTEROL SULFATE;IPRATROPIUM BROMIDE [Concomitant]
     Route: 065
  6. IPRATROPIUM BROMIDE. [Concomitant]
     Active Substance: IPRATROPIUM BROMIDE
     Dosage: UNK
     Route: 065
  7. PROVENTIL HFA [SALBUTAMOL] [Concomitant]
     Route: 065
  8. XANAX [Concomitant]
     Active Substance: ALPRAZOLAM
     Route: 065
  9. HUMAN NORMAL IMMUNOGLOBULIN; LIQUID [Suspect]
     Active Substance: HUMAN IMMUNOGLOBULIN G
     Indication: IMMUNODEFICIENCY COMMON VARIABLE
     Dosage: 10 GRAM, 1/WEEK
     Route: 058
     Dates: start: 20130823
  10. BUDESONIDE. [Concomitant]
     Active Substance: BUDESONIDE
     Route: 065
  11. DULERA [Concomitant]
     Active Substance: FORMOTEROL FUMARATE DIHYDRATE\MOMETASONE FUROATE
     Route: 065
  12. PRILOSEC [Concomitant]
     Active Substance: OMEPRAZOLE MAGNESIUM
     Route: 065
  13. LEVALBUTEROL [LEVOSALBUTAMOL] [Concomitant]
     Active Substance: LEVALBUTEROL
     Route: 065
  14. ALBUTEROL [SALBUTAMOL] [Concomitant]
     Active Substance: ALBUTEROL
     Dosage: UNK
     Route: 065
  15. HYDROCODONE COMPOUND [HOMATROPINE HYDROBROMIDE;HYDROCODONE BITARTRATE] [Concomitant]
     Dosage: UNK
     Route: 065
  16. AMOXICILLIN. [Concomitant]
     Active Substance: AMOXICILLIN
     Route: 065
  17. ACETAMINOPHEN. [Concomitant]
     Active Substance: ACETAMINOPHEN
     Route: 065
  18. CEFDINIR. [Concomitant]
     Active Substance: CEFDINIR
     Route: 065
  19. PREDNISONE. [Concomitant]
     Active Substance: PREDNISONE
     Route: 065
  20. LEVALBUTEROL HCL [Concomitant]
     Active Substance: LEVALBUTEROL HYDROCHLORIDE
     Route: 065
  21. IPRATROPIUM/ALBUTEROL [Concomitant]
     Active Substance: ALBUTEROL\IPRATROPIUM
     Route: 065
  22. SYNTHROID [Concomitant]
     Active Substance: LEVOTHYROXINE SODIUM
     Route: 065
  23. EPINEPHRINE. [Concomitant]
     Active Substance: EPINEPHRINE
     Route: 065
  24. EFFEXOR XR [Concomitant]
     Active Substance: VENLAFAXINE HYDROCHLORIDE
     Route: 065
  25. HYDROCODONE COMPOUND [HOMATROPINE HYDROBROMIDE;HYDROCODONE BITARTRATE] [Concomitant]
     Route: 065
  26. RESTORIL [CHLORMEZANONE] [Concomitant]
     Active Substance: CHLORMEZANONE
     Route: 065
  27. LOSARTAN POTASSIUM. [Concomitant]
     Active Substance: LOSARTAN POTASSIUM
     Route: 065

REACTIONS (4)
  - Malaise [Unknown]
  - Weight decreased [Unknown]
  - Asthenia [Unknown]
  - Colon cancer [Unknown]
